FAERS Safety Report 6908947 (Version 2)
Quarter: 2013Q1

REPORT INFORMATION
  Report Type: Spontaneous
  Country: CN (occurrence: CN)
  Receive Date: 20090213
  Receipt Date: 20130311
  Transmission Date: 20140127
  Serious: Yes (Other)
  Sender: FDA-Public Use
  Company Number: PHBS2009CN00760

PATIENT
  Age: 35 Year
  Sex: Male

DRUGS (2)
  1. SEBIVO [Suspect]
     Indication: CHRONIC HEPATITIS B
     Dosage: 600 MG QD
     Route: 048
     Dates: start: 20070616, end: 20080316
  2. PEGINTRON [Suspect]
     Dosage: 50 UG, QW
     Dates: end: 200802

REACTIONS (8)
  - Alanine aminotransferase increased [Recovered/Resolved]
  - Aspartate aminotransferase increased [Recovered/Resolved]
  - Blood bilirubin increased [Recovered/Resolved]
  - Chromaturia [Unknown]
  - Neuropathy peripheral [Recovering/Resolving]
  - Pain in extremity [Recovered/Resolved]
  - Activities of daily living impaired [Unknown]
  - Hepatitis B [Unknown]
